FAERS Safety Report 4334644-2 (Version None)
Quarter: 2004Q2

REPORT INFORMATION
  Report Type: 
  Country: None (occurrence: None)
  Receive Date: 20040408
  Receipt Date: 20040329
  Transmission Date: 20050107
  Serious: Yes (Other)
  Sender: FDA-Public Use
  Company Number: PHFR2004GB01626

PATIENT
  Age: 51 Year
  Sex: Male

DRUGS (2)
  1. LAMISIL [Suspect]
     Indication: ONYCHOGRYPHOSIS
     Dosage: 250 MG, QD
     Route: 048
     Dates: start: 20040301, end: 20040308
  2. DIAZEPAM [Concomitant]
     Indication: ANXIETY
     Dosage: 2MG/DAY
     Route: 048

REACTIONS (4)
  - CONCOMITANT DISEASE AGGRAVATED [None]
  - DEPRESSION [None]
  - HYPERVENTILATION [None]
  - PARAESTHESIA [None]
